FAERS Safety Report 24646354 (Version 1)
Quarter: 2024Q4

REPORT INFORMATION
  Report Type: Other
  Country: GB (occurrence: GB)
  Receive Date: 20241121
  Receipt Date: 20241121
  Transmission Date: 20250114
  Serious: Yes (Other)
  Sender: MACLEODS
  Company Number: GB-MHRA-EMIS-7471-543d95c0-b290-4acb-91cf-cd7313970421

PATIENT

DRUGS (5)
  1. TAMSULOSIN [Suspect]
     Active Substance: TAMSULOSIN
     Indication: Product used for unknown indication
     Dosage: ONE TO BE TAKEN EACH DAY
     Route: 065
  2. ZOLPIDEM [Concomitant]
     Active Substance: ZOLPIDEM TARTRATE
     Indication: Insomnia
     Dosage: TAKE ONE AT NIGHT FOR INSOMNIA WHEN REQUIRED EVERY 2-3 NIGHTS IN A REDUCING AMOUNT
     Route: 065
     Dates: start: 20240808
  3. Brinzolamide 10mg/ml / Timolol 5mg/ml eye drops [Concomitant]
     Indication: Product used for unknown indication
     Dosage: ONE DROP TO BE USED IN THE AFFECTED EYE(S) TWICE A DAY?5ML
     Route: 065
     Dates: start: 20240902
  4. LIDOCAINE [Concomitant]
     Active Substance: LIDOCAINE
     Indication: Product used for unknown indication
     Dosage: GIVEN
     Route: 065
     Dates: start: 20240918
  5. FLUOROURACIL [Concomitant]
     Active Substance: FLUOROURACIL
     Indication: Product used for unknown indication
     Dosage: APPLY THINLY UPTO TWICE A DAY FOR A MAX OF 3 WEEKS?40G
     Route: 065
     Dates: start: 20240923

REACTIONS (5)
  - Joint swelling [Unknown]
  - Blood pressure increased [Unknown]
  - Respiratory rate increased [Unknown]
  - Peripheral swelling [Unknown]
  - Heart rate increased [Recovered/Resolved]
